FAERS Safety Report 4368662-5 (Version None)
Quarter: 2004Q2

REPORT INFORMATION
  Report Type: 
  Country: None (occurrence: None)
  Receive Date: 20040602
  Receipt Date: 20040512
  Transmission Date: 20050107
  Serious: Yes (Death, Life-Threatening)
  Sender: FDA-Public Use
  Company Number: 009-20785-04050365

PATIENT
  Age: 47 Year
  Sex: Female

DRUGS (2)
  1. THALIDOMIDE (THALIDOMIDE) (UNKNOWN) [Suspect]
     Indication: HAEMANGIOBLASTOMA
     Dosage: 100 MG, QHS, ORAL (SEE IMAGE)
     Route: 048
     Dates: start: 20000501, end: 20011101
  2. THALIDOMIDE (THALIDOMIDE) (UNKNOWN) [Suspect]
     Indication: HAEMANGIOBLASTOMA
     Dosage: 100 MG, QHS, ORAL (SEE IMAGE)
     Route: 048
     Dates: start: 20000501

REACTIONS (2)
  - PNEUMONIA [None]
  - PNEUMONIA LEGIONELLA [None]
